FAERS Safety Report 15467736 (Version 1)
Quarter: 2018Q4

REPORT INFORMATION
  Report Type: Other
  Country: US (occurrence: US)
  Receive Date: 20181005
  Receipt Date: 20181005
  Transmission Date: 20190204
  Serious: Yes (Death)
  Sender: FDA-Public Use
  Company Number: US-ACTELION-A-CH2018-179474

PATIENT

DRUGS (5)
  1. DOPAMINE [Concomitant]
     Active Substance: DOPAMINE\DOPAMINE HYDROCHLORIDE
  2. EPINEPHRINE. [Concomitant]
     Active Substance: EPINEPHRINE
  3. MILRINONE [Concomitant]
     Active Substance: MILRINONE
  4. OXYGEN. [Concomitant]
     Active Substance: OXYGEN
  5. EPOPROSTENOL SODIUM. [Suspect]
     Active Substance: EPOPROSTENOL SODIUM
     Indication: PULMONARY HYPERTENSION
     Dosage: 4 NG/KG, PER MIN
     Route: 042

REACTIONS (5)
  - Hypotension [Unknown]
  - Tachycardia [Unknown]
  - Oxygen saturation decreased [Unknown]
  - Death [Fatal]
  - Dehydration [Unknown]
